FAERS Safety Report 5362914-8 (Version None)
Quarter: 2007Q2

REPORT INFORMATION
  Report Type: 
  Country: None (occurrence: None)
  Receive Date: 20070614
  Receipt Date: 20070219
  Transmission Date: 20071010
  Serious: Yes (Hospitalization)
  Sender: FDA-Public Use
  Company Number: MEDI-0005459

PATIENT
  Sex: Female

DRUGS (1)
  1. SYNAGIS [Suspect]

REACTIONS (1)
  - BRONCHIOLITIS [None]
